FAERS Safety Report 9436734 (Version 2)
Quarter: 2013Q3

REPORT INFORMATION
  Report Type: Spontaneous
  Country: US (occurrence: US)
  Receive Date: 20130802
  Receipt Date: 20130807
  Transmission Date: 20140515
  Serious: Yes (Hospitalization)
  Sender: FDA-Public Use
  Company Number: US-BAYER-2013-092182

PATIENT
  Age: 45 Year
  Sex: Female

DRUGS (6)
  1. YAZ [Suspect]
  2. DEMEROL [Concomitant]
     Dosage: 75 MG, UNK
     Route: 030
  3. PHENERGAN [Concomitant]
     Dosage: 25 MG, UNK
     Route: 030
  4. NEXIUM [Concomitant]
     Dosage: 40 MG, UNK
     Route: 042
  5. MORPHINE [Concomitant]
     Dosage: 1-2 MG,EVERY 4 - 6 HOURS AS NEEDED.
     Route: 042
  6. FLAGYL [Concomitant]
     Indication: BACTERIAL VAGINOSIS

REACTIONS (1)
  - Pulmonary embolism [Recovered/Resolved]
